FAERS Safety Report 4515215-1 (Version None)
Quarter: 2004Q4

REPORT INFORMATION
  Report Type: 
  Country: None (occurrence: None)
  Receive Date: 20041201
  Receipt Date: 20041119
  Transmission Date: 20050328
  Serious: Yes (Other)
  Sender: FDA-Public Use
  Company Number: GB-GLAXOSMITHKLINE-B0357735A

PATIENT
  Sex: Female

DRUGS (2)
  1. SEROXAT [Suspect]
     Indication: POSTPARTUM DEPRESSION
     Dates: start: 19921101, end: 19950901
  2. PROZAC [Concomitant]
     Dates: start: 19960101

REACTIONS (11)
  - AMNESIA [None]
  - DEPENDENCE [None]
  - DEPRESSION [None]
  - DISSOCIATION [None]
  - DRUG WITHDRAWAL SYNDROME [None]
  - EMOTIONAL DISORDER [None]
  - FATIGUE [None]
  - LETHARGY [None]
  - MENTAL DISORDER [None]
  - PHYSICAL ABUSE [None]
  - PSYCHOMOTOR HYPERACTIVITY [None]
